FAERS Safety Report 17410203 (Version 5)
Quarter: 2021Q3

REPORT INFORMATION
  Report Type: Spontaneous
  Country: US (occurrence: US)
  Receive Date: 20200212
  Receipt Date: 20210908
  Transmission Date: 20211014
  Serious: Yes (Other)
  Sender: FDA-Public Use
  Company Number: US-SA-2020SA037150

PATIENT
  Age: 91 Year
  Sex: Female
  Weight: 67 kg

DRUGS (5)
  1. LEVOTHYROXINE. [Concomitant]
     Active Substance: LEVOTHYROXINE
     Indication: THYROID DISORDER
     Dosage: UNK
  2. METOPROLOL. [Concomitant]
     Active Substance: METOPROLOL
     Indication: BLOOD PRESSURE MEASUREMENT
     Dosage: 25 MG, QD
  3. ELIQUIS [Suspect]
     Active Substance: APIXABAN
     Indication: HEART VALVE REPLACEMENT
     Dosage: 2.5 MG
     Route: 048
     Dates: start: 201909
  4. APIXABAN [Suspect]
     Active Substance: APIXABAN
     Dosage: 2.5 MG, Q12H
     Route: 048
     Dates: start: 201909
  5. PLAVIX [Suspect]
     Active Substance: CLOPIDOGREL BISULFATE
     Indication: PRODUCT USED FOR UNKNOWN INDICATION
     Dosage: 75 MG, QD

REACTIONS (28)
  - Gait inability [Unknown]
  - Myocardial haemorrhage [Unknown]
  - Pulmonary haemorrhage [Unknown]
  - Cardiac operation [Unknown]
  - Procedural pain [Unknown]
  - Weight increased [Unknown]
  - Dyspnoea [Unknown]
  - Musculoskeletal chest pain [Unknown]
  - Myalgia [Unknown]
  - Nerve injury [Unknown]
  - Fall [Unknown]
  - Contusion [Unknown]
  - Limb discomfort [Unknown]
  - Vomiting [Unknown]
  - Pain [Unknown]
  - Feeling abnormal [Unknown]
  - Groin pain [Unknown]
  - Swollen tongue [Unknown]
  - Blindness [Unknown]
  - Atrial fibrillation [Unknown]
  - Pain in extremity [Unknown]
  - White coat hypertension [Unknown]
  - Haemorrhage [Unknown]
  - Flatulence [Unknown]
  - Compulsive lip biting [Unknown]
  - Coronary artery disease [Unknown]
  - Unevaluable event [Unknown]
  - Fatigue [Unknown]

NARRATIVE: CASE EVENT DATE: 202004
